FAERS Safety Report 26134267 (Version 1)
Quarter: 2025Q4

REPORT INFORMATION
  Report Type: Report from Study
  Country: CA (occurrence: CA)
  Receive Date: 20251209
  Receipt Date: 20251209
  Transmission Date: 20260118
  Serious: Yes (Other)
  Sender: CELLTRION
  Company Number: CA-CELLTRION INC.-2025CA033190

PATIENT

DRUGS (4)
  1. INFLIXIMAB-DYYB [Suspect]
     Active Substance: INFLIXIMAB-DYYB
     Indication: Hepatitis
     Dosage: 800 MG, EVERY 6 WEEKS (MAINTENANCE)
     Route: 042
     Dates: start: 20250911
  2. INFLIXIMAB-DYYB [Suspect]
     Active Substance: INFLIXIMAB-DYYB
     Dosage: 800 MG, EVERY 6 WEEKS (MAINTENANCE)
     Route: 042
     Dates: start: 20250911
  3. INFLUENZA VIRUS VACCINE [Concomitant]
     Active Substance: INFLUENZA VIRUS VACCINE
  4. COVID-19 VACCINE [Concomitant]

REACTIONS (2)
  - Cyst [Unknown]
  - Off label use [Unknown]

NARRATIVE: CASE EVENT DATE: 20250911
